FAERS Safety Report 16410602 (Version 1)
Quarter: 2019Q2

REPORT INFORMATION
  Report Type: Report from Study
  Country: KR (occurrence: KR)
  Receive Date: 20190610
  Receipt Date: 20190610
  Transmission Date: 20190711
  Serious: Yes (Other)
  Sender: FDA-Public Use
  Company Number: KR-SA-2019SA106041

PATIENT
  Age: 61 Year
  Sex: Female

DRUGS (8)
  1. TOUJEO [Suspect]
     Active Substance: INSULIN GLARGINE
     Indication: DIABETES MELLITUS
     Dosage: 24 U AND 14 U, BID
     Route: 058
     Dates: start: 201905
  2. TOUJEO [Suspect]
     Active Substance: INSULIN GLARGINE
     Dosage: 24 U AND 12 U, BID
     Route: 058
     Dates: start: 20190429, end: 2019
  3. INSULIN GLARGINE [Suspect]
     Active Substance: INSULIN GLARGINE
     Dosage: 24-0-12 UNITS
     Route: 058
     Dates: start: 20190426, end: 20190428
  4. INSULIN GLARGINE [Suspect]
     Active Substance: INSULIN GLARGINE
     Indication: DIABETES MELLITUS
     Dosage: 28-0-14 UNITS, BID
     Route: 058
     Dates: start: 201903, end: 20190414
  5. INSULIN GLARGINE [Suspect]
     Active Substance: INSULIN GLARGINE
     Dosage: 28-0-14 UNITS
     Route: 058
     Dates: start: 20190416, end: 20190425
  6. INSULIN GLARGINE [Suspect]
     Active Substance: INSULIN GLARGINE
     Dosage: MORNING (28 UNITS) AND 14 UNITS IN THE EVENING (14 UNITS)
     Route: 058
     Dates: start: 201903
  7. INSULIN GLARGINE [Suspect]
     Active Substance: INSULIN GLARGINE
     Dosage: 14 U, QD
     Route: 058
     Dates: start: 20190415, end: 20190415
  8. TOUJEO [Suspect]
     Active Substance: INSULIN GLARGINE
     Dosage: 28 U AND 14 U, BID
     Route: 058
     Dates: start: 2019

REACTIONS (10)
  - Inappropriate schedule of product administration [Unknown]
  - Diplopia [Not Recovered/Not Resolved]
  - Hypoglycaemia [Recovered/Resolved]
  - Muscular weakness [Recovered/Resolved]
  - Injection site erythema [Recovered/Resolved]
  - Product storage error [Unknown]
  - Palpitations [Recovered/Resolved]
  - Tremor [Recovered/Resolved]
  - Hyperglycaemia [Not Recovered/Not Resolved]
  - Headache [Not Recovered/Not Resolved]

NARRATIVE: CASE EVENT DATE: 201903
